FAERS Safety Report 9032665 (Version 2)
Quarter: 2013Q3

REPORT INFORMATION
  Report Type: Spontaneous
  Country: US (occurrence: None)
  Receive Date: 20130110
  Receipt Date: 20130927
  Transmission Date: 20140515
  Serious: Yes (Death)
  Sender: FDA-Public Use
  Company Number: ACO_33628_2012

PATIENT
  Age: 42 Year
  Sex: Female

DRUGS (5)
  1. AMPYRA (DALFAMPRIDINE) TABLET, 10MG [Suspect]
     Indication: MULTIPLE SCLEROSIS
     Route: 048
     Dates: start: 20120809, end: 20121209
  2. TYSABRI (NATALIZUMAB) [Concomitant]
  3. CRESTOR (ROSUVASTATIN CALCIUM) [Concomitant]
  4. ENABLEX (DARIFENACIN HYDROBROMIDE) [Concomitant]
  5. ALL OTHER NON-THERAPEUTIC PRODUCTS [Concomitant]

REACTIONS (3)
  - Death [None]
  - Pain [None]
  - Unresponsive to stimuli [None]
